FAERS Safety Report 8853711 (Version 5)
Quarter: 2019Q2

REPORT INFORMATION
  Report Type: Spontaneous
  Country: BR (occurrence: BR)
  Receive Date: 20121022
  Receipt Date: 20190509
  Transmission Date: 20190711
  Serious: Yes (Other)
  Sender: FDA-Public Use
  Company Number: BR-PFIZER INC-2012260829

PATIENT
  Age: 48 Year
  Sex: Female
  Weight: 109 kg

DRUGS (4)
  1. BENICAR [Concomitant]
     Active Substance: OLMESARTAN MEDOXOMIL
     Dosage: UNK
  2. SERTRALINE [Concomitant]
     Active Substance: SERTRALINE HYDROCHLORIDE
     Dosage: UNK
  3. FRONTAL [Suspect]
     Active Substance: ALPRAZOLAM
     Indication: DEPRESSION
     Dosage: 1 MG, 2X/DAY (ONE TABLET, TWICE A DAY)
     Route: 048
     Dates: start: 1992
  4. FRONTAL [Suspect]
     Active Substance: ALPRAZOLAM
     Indication: PANIC DISORDER
     Dosage: 1 MG, 3X/DAY

REACTIONS (14)
  - Diabetes mellitus [Unknown]
  - Rheumatic disorder [Unknown]
  - Gastrooesophageal reflux disease [Unknown]
  - Drug dependence [Unknown]
  - Cardiac disorder [Unknown]
  - Arthritis [Unknown]
  - Fibromyalgia [Unknown]
  - Visual impairment [Unknown]
  - Joint injury [Unknown]
  - Breast cancer [Unknown]
  - Hypertension [Unknown]
  - Pain [Unknown]
  - Osteoarthritis [Unknown]
  - Product use issue [Unknown]

NARRATIVE: CASE EVENT DATE: 2000
